FAERS Safety Report 7364925-X (Version None)
Quarter: 2011Q1

REPORT INFORMATION
  Report Type: 
  Country: None (occurrence: None)
  Receive Date: 20110321
  Receipt Date: 20110308
  Transmission Date: 20110831
  Serious: Yes (Hospitalization)
  Sender: FDA-Public Use
  Company Number: US-JNJFOC-20060101073

PATIENT
  Sex: Male
  Weight: 59 kg

DRUGS (9)
  1. PREDNISONE [Concomitant]
  2. INFLIXIMAB [Suspect]
     Dosage: TOTAL 6 DOSES RECEIVED
     Route: 042
  3. SOLU-MEDROL [Concomitant]
  4. GENTAMICIN [Concomitant]
  5. METRONIDAZOLE [Concomitant]
  6. INFLIXIMAB [Suspect]
     Indication: CROHN'S DISEASE
     Dosage: TREATMENT OF ACTIVE INFLAMMATORY DISEASE
     Route: 042
  7. AMPICILLIN [Concomitant]
  8. PREDNISONE [Concomitant]
  9. IMURAN [Concomitant]

REACTIONS (5)
  - DISSEMINATED INTRAVASCULAR COAGULATION [None]
  - ABDOMINAL WALL ABSCESS [None]
  - CROHN'S DISEASE [None]
  - BACTERAEMIA [None]
  - ABDOMINAL DISTENSION [None]
